FAERS Safety Report 8107828-5 (Version None)
Quarter: 2012Q1

REPORT INFORMATION
  Report Type: 
  Country: None (occurrence: None)
  Receive Date: 20120202
  Receipt Date: 20120123
  Transmission Date: 20120608
  Serious: Yes (Hospitalization, Other)
  Sender: FDA-Public Use
  Company Number: US-ROCHE-792768

PATIENT
  Sex: Female
  Weight: 83.99 kg

DRUGS (1)
  1. ACCUTANE [Suspect]
     Indication: ACNE
     Route: 065
     Dates: start: 19920101, end: 19941231

REACTIONS (6)
  - CROHN'S DISEASE [None]
  - INFLAMMATORY BOWEL DISEASE [None]
  - DEPRESSION [None]
  - CLOSTRIDIUM DIFFICILE COLITIS [None]
  - GALLBLADDER DISORDER [None]
  - SMALL INTESTINAL OBSTRUCTION [None]
